FAERS Safety Report 15046040 (Version 1)
Quarter: 2018Q2

REPORT INFORMATION
  Report Type: Spontaneous
  Country: LB (occurrence: LB)
  Receive Date: 20180621
  Receipt Date: 20180621
  Transmission Date: 20180711
  Serious: Yes (Other)
  Sender: FDA-Public Use
  Company Number: LB-ALLERGAN-1830984US

PATIENT

DRUGS (1)
  1. CEFTAZIDIME;AVIBACTAM - BP [Suspect]
     Active Substance: AVIBACTAM SODIUM\CEFTAZIDIME
     Indication: PRODUCT USED FOR UNKNOWN INDICATION
     Dosage: UNK, UNKNOWN
     Route: 065

REACTIONS (4)
  - Pathogen resistance [Unknown]
  - Escherichia urinary tract infection [Unknown]
  - Escherichia test positive [Unknown]
  - Escherichia bacteraemia [Unknown]
